FAERS Safety Report 16336189 (Version 1)
Quarter: 2019Q2

REPORT INFORMATION
  Report Type: Spontaneous
  Country: FR (occurrence: FR)
  Receive Date: 20190521
  Receipt Date: 20190521
  Transmission Date: 20190711
  Serious: Yes (Life-Threatening)
  Sender: FDA-Public Use
  Company Number: FR-SA-2019SA134411

PATIENT
  Age: 76 Year
  Sex: Male
  Weight: 82 kg

DRUGS (10)
  1. LANTUS [Suspect]
     Active Substance: INSULIN GLARGINE
     Indication: TYPE 2 DIABETES MELLITUS
     Dosage: 26 IU, QD
     Route: 058
  2. UVEDOSE [Concomitant]
     Active Substance: CHOLECALCIFEROL
  3. AVLOCARDYL [PROPRANOLOL HYDROCHLORIDE] [Concomitant]
  4. FUROSEMIDE. [Concomitant]
     Active Substance: FUROSEMIDE
  5. JOSIR [Concomitant]
     Active Substance: TAMSULOSIN
  6. NOVORAPID [Suspect]
     Active Substance: INSULIN ASPART
     Indication: TYPE 2 DIABETES MELLITUS
     Dosage: 36 IU, QD
     Route: 058
  7. TARDYFERON [Concomitant]
     Active Substance: FERROUS SULFATE
  8. LANTUS [Suspect]
     Active Substance: INSULIN GLARGINE
     Route: 058
  9. ACIDE FOLIQUE [Concomitant]
     Active Substance: FOLIC ACID
  10. INEXIUM [ESOMEPRAZOLE MAGNESIUM] [Concomitant]
     Active Substance: ESOMEPRAZOLE MAGNESIUM

REACTIONS (4)
  - Malaise [Recovered/Resolved]
  - Bradycardia [Recovered/Resolved]
  - Hypoglycaemic coma [Recovered/Resolved]
  - Hypothermia [Recovered/Resolved]

NARRATIVE: CASE EVENT DATE: 20141230
